FAERS Safety Report 24201170 (Version 2)
Quarter: 2024Q3

REPORT INFORMATION
  Report Type: Spontaneous
  Country: US (occurrence: US)
  Receive Date: 20240812
  Receipt Date: 20240813
  Transmission Date: 20241017
  Serious: No
  Sender: PFIZER
  Company Number: US-PFIZER INC-202400234503

PATIENT
  Age: 42 Year
  Sex: Male

DRUGS (1)
  1. VELSIPITY [Suspect]
     Active Substance: ETRASIMOD ARGININE
     Dosage: TAKE 2MG BY MOUTH DAILY
     Route: 048

REACTIONS (1)
  - Defaecation urgency [Unknown]

NARRATIVE: CASE EVENT DATE: 20240701
